FAERS Safety Report 12393043 (Version 1)
Quarter: 2016Q2

REPORT INFORMATION
  Report Type: Spontaneous
  Country: US (occurrence: None)
  Receive Date: 20160520
  Receipt Date: 20160520
  Transmission Date: 20160815
  Serious: Yes (Life-Threatening, Disabling, Congenital Anomaly, Other)
  Sender: FDA-Public Use
  Company Number: None

PATIENT
  Age: 54 Year
  Sex: Male

DRUGS (6)
  1. VIAGRA [Suspect]
     Active Substance: SILDENAFIL CITRATE
     Indication: DRUG THERAPY ENHANCEMENT
     Route: 048
     Dates: start: 20151104
  2. SWAG [Suspect]
     Active Substance: HERBALS
  3. TADALAFIL [Suspect]
     Active Substance: TADALAFIL
  4. BLUE RHINO [Suspect]
     Active Substance: HERBALS
     Indication: DRUG THERAPY ENHANCEMENT
     Route: 048
     Dates: start: 20151104
  5. PRESCRIPTIONS [Concomitant]
  6. SILDENAFIL. [Suspect]
     Active Substance: SILDENAFIL

REACTIONS (5)
  - Weight decreased [None]
  - Aggression [None]
  - Anxiety [None]
  - Abnormal behaviour [None]
  - Hypertension [None]

NARRATIVE: CASE EVENT DATE: 20160517
